FAERS Safety Report 17496347 (Version 1)
Quarter: 2020Q1

REPORT INFORMATION
  Report Type: Spontaneous
  Country: US (occurrence: US)
  Receive Date: 20200304
  Receipt Date: 20200304
  Transmission Date: 20200409
  Serious: Yes (Hospitalization)
  Sender: FDA-Public Use
  Company Number: None

PATIENT
  Age: 81 Year
  Sex: Male

DRUGS (12)
  1. SMZ-TMP TAB [Concomitant]
  2. SIROLIMUS. [Suspect]
     Active Substance: SIROLIMUS
     Indication: RENAL TRANSPLANT
     Route: 048
     Dates: start: 20191206
  3. DONEPEZIL. [Concomitant]
     Active Substance: DONEPEZIL
  4. D3 CAP [Concomitant]
  5. FEROSUL TAB [Concomitant]
  6. ATORVASTATIN [Concomitant]
     Active Substance: ATORVASTATIN
  7. FINASTERIDE. [Concomitant]
     Active Substance: FINASTERIDE
  8. PREDNISONE. [Concomitant]
     Active Substance: PREDNISONE
  9. MEMANTINE. [Concomitant]
     Active Substance: MEMANTINE
  10. SIMVASTATIN. [Concomitant]
     Active Substance: SIMVASTATIN
  11. TAMSULOSIN [Concomitant]
     Active Substance: TAMSULOSIN
  12. MULTI-VITAMIN TAB [Concomitant]

REACTIONS (4)
  - Renal transplant [None]
  - Pneumonia [None]
  - Influenza [None]
  - Malaise [None]

NARRATIVE: CASE EVENT DATE: 20200303
